FAERS Safety Report 4691993-6 (Version None)
Quarter: 2005Q2

REPORT INFORMATION
  Report Type: 
  Country: None (occurrence: None)
  Receive Date: 20050608
  Receipt Date: 20040929
  Transmission Date: 20051028
  Serious: Yes (Other)
  Sender: FDA-Public Use
  Company Number: 381871

PATIENT

DRUGS (2)
  1. ACCUTANE [Suspect]
     Dosage: 40 MG 2 PER 1 DAY ORAL
     Route: 048
     Dates: start: 20040826, end: 20040926
  2. NUVARING (ETHINYL ESTRADIOL/ETONOGESTREL) [Concomitant]

REACTIONS (1)
  - ABORTION INDUCED [None]
